FAERS Safety Report 20379800 (Version 2)
Quarter: 2022Q1

REPORT INFORMATION
  Report Type: Spontaneous
  Country: US (occurrence: US)
  Receive Date: 20220126
  Receipt Date: 20220224
  Transmission Date: 20220424
  Serious: Yes (Hospitalization)
  Sender: FDA-Public Use
  Company Number: US-BIOGEN-2022BI01088490

PATIENT
  Age: 49 Year
  Sex: Female

DRUGS (1)
  1. VUMERITY [Interacting]
     Active Substance: DIROXIMEL FUMARATE
     Indication: Multiple sclerosis
     Route: 065
     Dates: start: 20201119, end: 202106

REACTIONS (5)
  - Decreased immune responsiveness [Recovered/Resolved]
  - Urinary tract infection [Recovered/Resolved]
  - Fall [Recovered/Resolved]
  - Loss of control of legs [Unknown]
  - Drug interaction [Unknown]

NARRATIVE: CASE EVENT DATE: 20201101
